FAERS Safety Report 6850930-6 (Version None)
Quarter: 2010Q3

REPORT INFORMATION
  Report Type: 
  Country: None (occurrence: None)
  Receive Date: 20100716
  Receipt Date: 20071025
  Transmission Date: 20110219
  Serious: No
  Sender: FDA-Public Use
  Company Number: US-PFIZER INC-2007090763

PATIENT
  Sex: Female
  Weight: 64.5 kg

DRUGS (5)
  1. CHANTIX [Suspect]
     Indication: SMOKING CESSATION THERAPY
     Dates: start: 20071016
  2. ZOLOFT [Concomitant]
  3. ZYRTEC-D 12 HOUR [Concomitant]
  4. ACETYLSALICYLIC ACID [Concomitant]
  5. MULTI-VITAMINS [Concomitant]

REACTIONS (3)
  - ABNORMAL DREAMS [None]
  - PRURITUS [None]
  - SKIN LESION [None]
